FAERS Safety Report 6652859-5 (Version None)
Quarter: 2010Q1

REPORT INFORMATION
  Report Type: 
  Country: None (occurrence: None)
  Receive Date: 20100326
  Receipt Date: 20100315
  Transmission Date: 20100710
  Serious: Yes (Hospitalization)
  Sender: FDA-Public Use
  Company Number: US-JNJFOC-20100304583

PATIENT
  Sex: Female
  Weight: 95.26 kg

DRUGS (10)
  1. REMICADE [Suspect]
     Indication: RHEUMATOID ARTHRITIS
     Route: 042
  2. METHOTREXATE [Suspect]
     Indication: DRUG USE FOR UNKNOWN INDICATION
  3. RITUXAN [Concomitant]
  4. LEVEMIR [Concomitant]
     Indication: DIABETES MELLITUS
  5. INSULIN HUMULIN [Concomitant]
     Indication: DIABETES MELLITUS
  6. LIPITOR [Concomitant]
     Indication: BLOOD CHOLESTEROL
  7. OXYCODONE [Concomitant]
     Indication: PAIN
  8. METHADONE [Concomitant]
     Indication: PAIN
  9. KLONOPIN [Concomitant]
     Indication: ANXIETY
  10. CYMBALTA [Concomitant]
     Indication: ANTIDEPRESSANT THERAPY

REACTIONS (6)
  - BLOOD GLUCOSE INCREASED [None]
  - DRUG INEFFECTIVE [None]
  - HEPATIC ENZYME INCREASED [None]
  - MUSCLE SPASMS [None]
  - PAIN [None]
  - RED BLOOD CELL SEDIMENTATION RATE INCREASED [None]
